FAERS Safety Report 22727722 (Version 2)
Quarter: 2025Q3

REPORT INFORMATION
  Report Type: Report from Study
  Country: KR (occurrence: KR)
  Receive Date: 20230720
  Receipt Date: 20250929
  Transmission Date: 20251020
  Serious: Yes (Hospitalization)
  Sender: MYLAN
  Company Number: KR-MYLANLABS-2023M1074891

PATIENT
  Sex: Female
  Weight: 73.7 kg

DRUGS (20)
  1. PREGABALIN [Suspect]
     Active Substance: PREGABALIN
     Indication: Neuropathy peripheral
     Dosage: 1 DOSAGE FORM, QD
     Dates: start: 20201006, end: 20210203
  2. PREGABALIN [Suspect]
     Active Substance: PREGABALIN
     Dosage: 1 DOSAGE FORM, QD
     Route: 048
     Dates: start: 20201006, end: 20210203
  3. PREGABALIN [Suspect]
     Active Substance: PREGABALIN
     Dosage: 1 DOSAGE FORM, QD
     Route: 048
     Dates: start: 20201006, end: 20210203
  4. PREGABALIN [Suspect]
     Active Substance: PREGABALIN
     Dosage: 1 DOSAGE FORM, QD
     Dates: start: 20201006, end: 20210203
  5. ATORVASTATIN CALCIUM [Concomitant]
     Active Substance: ATORVASTATIN CALCIUM
  6. ATORVASTATIN CALCIUM [Concomitant]
     Active Substance: ATORVASTATIN CALCIUM
     Route: 048
  7. ATORVASTATIN CALCIUM [Concomitant]
     Active Substance: ATORVASTATIN CALCIUM
     Route: 048
  8. ATORVASTATIN CALCIUM [Concomitant]
     Active Substance: ATORVASTATIN CALCIUM
  9. NORVASC [Concomitant]
     Active Substance: AMLODIPINE BESYLATE
  10. NORVASC [Concomitant]
     Active Substance: AMLODIPINE BESYLATE
     Route: 048
  11. NORVASC [Concomitant]
     Active Substance: AMLODIPINE BESYLATE
     Route: 048
  12. NORVASC [Concomitant]
     Active Substance: AMLODIPINE BESYLATE
  13. LYRICA [Concomitant]
     Active Substance: PREGABALIN
     Route: 048
     Dates: start: 20200928, end: 20201003
  14. LYRICA [Concomitant]
     Active Substance: PREGABALIN
     Dates: start: 20200928, end: 20201003
  15. LYRICA [Concomitant]
     Active Substance: PREGABALIN
     Dates: start: 20200928, end: 20201003
  16. LYRICA [Concomitant]
     Active Substance: PREGABALIN
     Route: 048
     Dates: start: 20200928, end: 20201003
  17. LYRICA [Concomitant]
     Active Substance: PREGABALIN
     Route: 065
  18. LYRICA [Concomitant]
     Active Substance: PREGABALIN
  19. LYRICA [Concomitant]
     Active Substance: PREGABALIN
  20. LYRICA [Concomitant]
     Active Substance: PREGABALIN
     Route: 065

REACTIONS (2)
  - Liver function test increased [Unknown]
  - Off label use [Unknown]

NARRATIVE: CASE EVENT DATE: 20201006
